FAERS Safety Report 18186707 (Version 2)
Quarter: 2021Q4

REPORT INFORMATION
  Report Type: Spontaneous
  Country: US (occurrence: US)
  Receive Date: 20200824
  Receipt Date: 20211028
  Transmission Date: 20220303
  Serious: No
  Sender: FDA-Public Use
  Company Number: US-PFIZER INC-2020248976

PATIENT
  Age: 73 Year
  Sex: Female

DRUGS (2)
  1. IBRANCE [Suspect]
     Active Substance: PALBOCICLIB
     Indication: Breast cancer
     Dosage: 75 MG, CYCLIC (TAKE ONE TABLET BY MOUTH DAILY 28 DAY SUPPLY)
     Route: 048
  2. IBRANCE [Suspect]
     Active Substance: PALBOCICLIB
     Dosage: 75 MG, CYCLIC [21 DAYS ON, 7 DAYS]
     Dates: start: 20190929

REACTIONS (3)
  - Stomatitis [Recovered/Resolved]
  - Lip ulceration [Recovering/Resolving]
  - Oral mucosal exfoliation [Recovering/Resolving]

NARRATIVE: CASE EVENT DATE: 20200803
